FAERS Safety Report 9421958 (Version 1)
Quarter: 2013Q3

REPORT INFORMATION
  Report Type: Spontaneous
  Country: US (occurrence: US)
  Receive Date: 20130726
  Receipt Date: 20130726
  Transmission Date: 20140515
  Serious: Yes (Other)
  Sender: FDA-Public Use
  Company Number: US-JNJFOC-20111105096

PATIENT
  Age: 27 Year
  Sex: Female
  Weight: 62.6 kg

DRUGS (5)
  1. REMICADE [Suspect]
     Indication: ANKYLOSING SPONDYLITIS
     Route: 042
     Dates: start: 20111104, end: 20111104
  2. IMITREX [Concomitant]
     Indication: MIGRAINE
     Route: 048
     Dates: start: 2009
  3. PROTONIX [Concomitant]
     Indication: GASTRIC DISORDER
     Route: 048
     Dates: start: 2010
  4. EFFEXOR [Concomitant]
     Indication: ANXIETY
     Route: 048
  5. IBUPROFEN [Concomitant]
     Indication: PAIN
     Route: 048
     Dates: start: 2011

REACTIONS (9)
  - Mental disorder [Recovered/Resolved]
  - Feeling abnormal [Recovered/Resolved]
  - Agitation [Recovered/Resolved]
  - Abnormal behaviour [Recovered/Resolved]
  - Fall [Recovered/Resolved]
  - Feeling drunk [Recovered/Resolved]
  - Crying [Not Recovered/Not Resolved]
  - Mood swings [Not Recovered/Not Resolved]
  - Headache [Not Recovered/Not Resolved]
